FAERS Safety Report 19619303 (Version 2)
Quarter: 2021Q3

REPORT INFORMATION
  Report Type: Spontaneous
  Country: US (occurrence: US)
  Receive Date: 20210727
  Receipt Date: 20210824
  Transmission Date: 20211014
  Serious: No
  Sender: FDA-Public Use
  Company Number: US-B.I. PHARMACEUTICALS,INC./RIDGEFIELD-2021-BI-118005

PATIENT
  Sex: Male

DRUGS (1)
  1. STRIVERDI RESPIMAT [Suspect]
     Active Substance: OLODATEROL HYDROCHLORIDE
     Indication: ASTHMA
     Dosage: ^2 TIMES A DAY^ PRN
     Route: 065
     Dates: start: 202106

REACTIONS (3)
  - Product complaint [Unknown]
  - Asthma [Not Recovered/Not Resolved]
  - Off label use [Unknown]
